FAERS Safety Report 15288562 (Version 1)
Quarter: 2018Q3

REPORT INFORMATION
  Report Type: Spontaneous
  Country: US (occurrence: US)
  Receive Date: 20180802
  Receipt Date: 20180802
  Transmission Date: 20181010
  Serious: Yes (Hospitalization)
  Sender: FDA-Public Use
  Company Number: None

PATIENT
  Age: 67 Year
  Sex: Male

DRUGS (2)
  1. DABIGATRAN [Suspect]
     Active Substance: DABIGATRAN
     Indication: ATRIAL FIBRILLATION
     Dates: start: 20180319
  2. ASPIRIN. [Suspect]
     Active Substance: ASPIRIN
     Dates: end: 20180330

REACTIONS (1)
  - Ulcer haemorrhage [None]

NARRATIVE: CASE EVENT DATE: 20180330
